FAERS Safety Report 5868744-2 (Version None)
Quarter: 2008Q3

REPORT INFORMATION
  Report Type: 
  Country: None (occurrence: None)
  Receive Date: 20080903
  Receipt Date: 20080825
  Transmission Date: 20090109
  Serious: Yes (Other)
  Sender: FDA-Public Use
  Company Number: FR-AMGEN-UK303761

PATIENT
  Sex: Female

DRUGS (6)
  1. NEULASTA [Suspect]
     Indication: CHEMOTHERAPY
     Route: 058
     Dates: end: 20080430
  2. FARMORUBICIN [Concomitant]
     Dates: start: 20080319
  3. ENDOXAN [Concomitant]
     Dates: start: 20080319
  4. FLUOROURACIL [Concomitant]
     Dates: start: 20080319
  5. EMEND [Concomitant]
     Dates: start: 20080429
  6. TAXOTERE [Concomitant]
     Dates: start: 20080604

REACTIONS (1)
  - DRUG INEFFECTIVE [None]
